FAERS Safety Report 6278347-6 (Version None)
Quarter: 2009Q3

REPORT INFORMATION
  Report Type: 
  Country: None (occurrence: None)
  Receive Date: 20090722
  Receipt Date: 20090720
  Transmission Date: 20100115
  Serious: Yes (Life-Threatening)
  Sender: FDA-Public Use
  Company Number: FR-ASTRAZENECA-2009SE05179

PATIENT
  Age: 26681 Day
  Sex: Male

DRUGS (4)
  1. NAROPIN [Suspect]
     Indication: NERVE BLOCK
     Route: 053
     Dates: start: 20090528, end: 20090528
  2. CARDENSIEL [Concomitant]
     Indication: CARDIAC FAILURE
  3. TRIATEC [Concomitant]
     Indication: CARDIAC FAILURE
  4. ALDACTONE [Concomitant]
     Indication: CARDIAC FAILURE

REACTIONS (2)
  - CARDIAC FAILURE [None]
  - HYPOTENSION [None]
